FAERS Safety Report 8319439-7 (Version None)
Quarter: 2012Q2

REPORT INFORMATION
  Report Type: 
  Country: None (occurrence: None)
  Receive Date: 20120427
  Receipt Date: 20120425
  Transmission Date: 20120825
  Serious: Yes (Other)
  Sender: FDA-Public Use
  Company Number: DE-BAYER-2012-032450

PATIENT
  Age: 61 Year
  Sex: Female
  Weight: 70 kg

DRUGS (1)
  1. BETASERON [Suspect]
     Indication: ENCEPHALOPATHY
     Dosage: UNK
     Route: 058
     Dates: start: 20011001

REACTIONS (6)
  - DYSPNOEA [None]
  - MYOCARDITIS [None]
  - ACUTE MYOCARDIAL INFARCTION [None]
  - CARDIAC FAILURE [None]
  - COUGH [None]
  - ASTHENIA [None]
